FAERS Safety Report 23042087 (Version 2)
Quarter: 2025Q2

REPORT INFORMATION
  Report Type: Report from Study
  Country: PT (occurrence: PT)
  Receive Date: 20231008
  Receipt Date: 20250430
  Transmission Date: 20250717
  Serious: Yes (Other)
  Sender: AUROBINDO
  Company Number: PT-CHEPLA-2023012190

PATIENT
  Age: 4 Month
  Sex: Female

DRUGS (2)
  1. VALGANCICLOVIR [Suspect]
     Active Substance: VALGANCICLOVIR
     Indication: Congenital cytomegalovirus infection
     Route: 065
  2. GANCICLOVIR [Suspect]
     Active Substance: GANCICLOVIR
     Indication: Congenital cytomegalovirus infection
     Route: 065

REACTIONS (4)
  - Feeding disorder [Unknown]
  - Psychomotor skills impaired [Unknown]
  - Product use in unapproved indication [Unknown]
  - Product use issue [Recovered/Resolved]
